FAERS Safety Report 8340119-6 (Version None)
Quarter: 2012Q2

REPORT INFORMATION
  Report Type: 
  Country: None (occurrence: None)
  Receive Date: 20120502
  Receipt Date: 20120502
  Transmission Date: 20120825
  Serious: No
  Sender: FDA-Public Use
  Company Number: None

PATIENT
  Age: 9 Year
  Sex: Male

DRUGS (3)
  1. KAPVAY [Suspect]
     Dosage: KAPVAY 0.1 MG QHS X 1 WEEK THEN 0.1 MG BID X 2 DAYS
  2. FOCALIN [Concomitant]
  3. RISPERIDONE [Concomitant]

REACTIONS (2)
  - URINARY INCONTINENCE [None]
  - SEDATION [None]
